FAERS Safety Report 4444996-0 (Version None)
Quarter: 2004Q3

REPORT INFORMATION
  Report Type: 
  Country: None (occurrence: None)
  Receive Date: 20040907
  Receipt Date: 20040824
  Transmission Date: 20050211
  Serious: Yes (Hospitalization)
  Sender: FDA-Public Use
  Company Number: 2004AP04447

PATIENT
  Age: 30 Year
  Sex: Female

DRUGS (6)
  1. TENORMIN [Suspect]
     Indication: HYPERTENSION
     Dosage: 50 MG BID PO
     Route: 048
     Dates: start: 19811014, end: 19811018
  2. TENORMIN [Suspect]
     Indication: HYPERTENSION
     Dosage: 50 MG DAILY PO
     Route: 048
     Dates: start: 19811019
  3. TENORMIN [Suspect]
     Indication: HYPERTENSION
     Dosage: 25 MG DAILY PO
     Route: 048
  4. TENORMIN [Suspect]
     Indication: HYPERTENSION
     Dosage: 50 MG BID PO
     Route: 048
     Dates: end: 20030901
  5. INDERAL [Concomitant]
  6. PARALGIN FORTE [Concomitant]

REACTIONS (19)
  - ABDOMINAL PAIN [None]
  - CARDIOSPASM [None]
  - COLITIS [None]
  - DEPRESSION [None]
  - DIARRHOEA [None]
  - DIZZINESS [None]
  - DYSPEPSIA [None]
  - GASTRITIS [None]
  - GASTROINTESTINAL DISORDER [None]
  - HYPERHIDROSIS [None]
  - IRRITABLE BOWEL SYNDROME [None]
  - MUCOUS MEMBRANE DISORDER [None]
  - NAUSEA [None]
  - OESOPHAGITIS [None]
  - PANCREATITIS CHRONIC [None]
  - THIRST [None]
  - UTERINE ENLARGEMENT [None]
  - WEIGHT DECREASED [None]
  - WEIGHT INCREASED [None]
